FAERS Safety Report 19106887 (Version 1)
Quarter: 2021Q2

REPORT INFORMATION
  Report Type: Spontaneous
  Country: US (occurrence: US)
  Receive Date: 20210408
  Receipt Date: 20210408
  Transmission Date: 20210717
  Serious: Yes (Death, Life-Threatening, Hospitalization, Other)
  Sender: FDA-Public Use
  Company Number: US-SUN PHARMACEUTICAL INDUSTRIES LTD-2021R1-290225

PATIENT
  Age: 49 Year
  Sex: Female

DRUGS (1)
  1. ACETAMINOPHEN. [Suspect]
     Active Substance: ACETAMINOPHEN
     Indication: PRODUCT USED FOR UNKNOWN INDICATION
     Dosage: UNK
     Route: 065

REACTIONS (8)
  - Hepatic enzyme increased [Unknown]
  - Lactic acidosis [Unknown]
  - International normalised ratio increased [Unknown]
  - Analgesic drug level increased [Recovering/Resolving]
  - Condition aggravated [Fatal]
  - Drug-induced liver injury [Unknown]
  - Metabolic acidosis [Unknown]
  - Prothrombin time prolonged [Unknown]
